FAERS Safety Report 8817818 (Version 1)
Quarter: 2012Q4

REPORT INFORMATION
  Report Type: 
  Country: US (occurrence: US)
  Receive Date: 20121004
  Receipt Date: 20121004
  Transmission Date: 20130627
  Serious: No
  Sender: FDA-Public Use
  Company Number: US-ASTRAZENECA-2012SE73609

PATIENT
  Age: 51 Year
  Sex: Female

DRUGS (2)
  1. PRILOSEC [Suspect]
     Route: 048
  2. NEXIUM [Concomitant]

REACTIONS (3)
  - Barrett^s oesophagus [Unknown]
  - Dyspepsia [Unknown]
  - Drug ineffective [Unknown]
